FAERS Safety Report 8309757-0 (Version None)
Quarter: 2012Q2

REPORT INFORMATION
  Report Type: 
  Country: None (occurrence: None)
  Receive Date: 20120425
  Receipt Date: 20120411
  Transmission Date: 20120825
  Serious: Yes (Other)
  Sender: FDA-Public Use
  Company Number: PHHY2012CH031285

PATIENT
  Sex: Male

DRUGS (7)
  1. NEORAL [Suspect]
     Dosage: 50 MG, TWICE PER DAY
     Route: 048
  2. PEGASYS [Concomitant]
     Dosage: 180 IG PER WEEK
     Route: 058
     Dates: start: 20110601
  3. CALCIMAGON-D3 [Concomitant]
  4. RECORMON [Concomitant]
     Dosage: 10000 IU, PER WEEK
     Route: 058
     Dates: start: 20110101
  5. NORVASC [Concomitant]
  6. COPEGUS [Concomitant]
     Dosage: 400 MG, TWICE PER DAY
     Route: 048
     Dates: start: 20110601
  7. NEXIUM [Concomitant]
     Dosage: 20 MG, TWICE PER DAY
     Route: 048

REACTIONS (1)
  - DEAFNESS UNILATERAL [None]
